FAERS Safety Report 10365975 (Version 2)
Quarter: 2014Q3

REPORT INFORMATION
  Report Type: Spontaneous
  Country: US (occurrence: US)
  Receive Date: 20140806
  Receipt Date: 20140806
  Transmission Date: 20150326
  Serious: Yes (Hospitalization, Disabling)
  Sender: FDA-Public Use
  Company Number: US-GLAXOSMITHKLINE-A0729294A

PATIENT
  Sex: Male

DRUGS (8)
  1. CELEBREX [Concomitant]
     Active Substance: CELECOXIB
  2. AVANDARYL [Suspect]
     Active Substance: GLIMEPIRIDE\ROSIGLITAZONE MALEATE
     Indication: TYPE 2 DIABETES MELLITUS
     Route: 048
     Dates: start: 200611, end: 20071107
  3. GLUCOPHAGE [Concomitant]
     Active Substance: METFORMIN HYDROCHLORIDE
  4. INSULIN [Concomitant]
     Active Substance: INSULIN NOS
  5. AVANDIA [Suspect]
     Active Substance: ROSIGLITAZONE MALEATE
     Indication: TYPE 2 DIABETES MELLITUS
     Dosage: 8MG IN THE MORNING
     Route: 048
     Dates: start: 200107, end: 20071107
  6. LOPRESSOR [Concomitant]
     Active Substance: METOPROLOL TARTRATE
  7. GLUCOTROL [Concomitant]
     Active Substance: GLIPIZIDE
  8. AMARYL [Concomitant]
     Active Substance: GLIMEPIRIDE

REACTIONS (6)
  - Coronary artery disease [Unknown]
  - Myocardial infarction [Unknown]
  - Cardiac failure congestive [Unknown]
  - Cardiovascular disorder [Unknown]
  - Cardiac disorder [Unknown]
  - Cardiac arrest [Unknown]
